FAERS Safety Report 10564570 (Version 1)
Quarter: 2014Q4

REPORT INFORMATION
  Report Type: Spontaneous
  Country: US (occurrence: US)
  Receive Date: 20141104
  Receipt Date: 20141104
  Transmission Date: 20150529
  Serious: No
  Sender: FDA-Public Use
  Company Number: US-MALLINCKRODT-T201403583

PATIENT
  Sex: Female
  Weight: 43.84 kg

DRUGS (1)
  1. FENTANYL TRANSDERMAL SYSTEM [Suspect]
     Active Substance: FENTANYL
     Indication: PAIN
     Dosage: 100 UG/HR, Q48H
     Route: 062
     Dates: start: 201407

REACTIONS (2)
  - Product adhesion issue [Not Recovered/Not Resolved]
  - Application site laceration [Not Recovered/Not Resolved]
